FAERS Safety Report 14754348 (Version 1)
Quarter: 2018Q2

REPORT INFORMATION
  Report Type: Spontaneous
  Country: US (occurrence: US)
  Receive Date: 20180412
  Receipt Date: 20180412
  Transmission Date: 20180711
  Serious: Yes (Hospitalization, Other)
  Sender: FDA-Public Use
  Company Number: US-ABBVIE-18S-163-2315326-00

PATIENT
  Sex: Female

DRUGS (1)
  1. CREON [Suspect]
     Active Substance: PANCRELIPASE AMYLASE\PANCRELIPASE LIPASE\PANCRELIPASE PROTEASE
     Indication: OFF LABEL USE
     Route: 048

REACTIONS (5)
  - Device dislocation [Recovered/Resolved]
  - Incorrect route of drug administration [Recovered/Resolved]
  - Erythema [Unknown]
  - Abdominal pain [Unknown]
  - Complication of device insertion [Recovered/Resolved]
